FAERS Safety Report 21203782 (Version 1)
Quarter: 2022Q3

REPORT INFORMATION
  Report Type: Spontaneous
  Country: US (occurrence: US)
  Receive Date: 20220811
  Receipt Date: 20220811
  Transmission Date: 20221026
  Serious: Yes (Other)
  Sender: FDA-Public Use
  Company Number: US-PRINSTON PHARMACEUTICAL INC.-2022PRN00279

PATIENT
  Age: 42 Year
  Sex: Female

DRUGS (5)
  1. DULOXETINE [Suspect]
     Active Substance: DULOXETINE
     Dosage: 60 MG, 2X/DAY
     Route: 065
  2. METOCLOPRAMIDE [Suspect]
     Active Substance: METOCLOPRAMIDE
     Dosage: 10 MG, 4X/DAY
     Route: 065
  3. METOCLOPRAMIDE [Suspect]
     Active Substance: METOCLOPRAMIDE
     Dosage: 10 MG, 4X/DAY
     Route: 042
  4. NORTRIPTYLINE [Suspect]
     Active Substance: NORTRIPTYLINE
     Dosage: 150 MG, 1X/DAY
     Route: 065
  5. OXYGEN [Concomitant]
     Active Substance: OXYGEN
     Route: 065

REACTIONS (4)
  - Serotonin syndrome [Recovered/Resolved]
  - Oculogyric crisis [Recovered/Resolved]
  - Dystonia [Recovered/Resolved]
  - Drug interaction [Recovered/Resolved]
